FAERS Safety Report 4399812-2 (Version None)
Quarter: 2004Q3

REPORT INFORMATION
  Report Type: 
  Country: None (occurrence: None)
  Receive Date: 20040714
  Receipt Date: 20040630
  Transmission Date: 20050211
  Serious: Yes (Hospitalization)
  Sender: FDA-Public Use
  Company Number: 03P-013-0222375-00

PATIENT
  Age: 46 Year
  Sex: Male
  Weight: 70 kg

DRUGS (4)
  1. KALETRA [Suspect]
     Indication: HIV INFECTION
     Dosage: 533 MG, 2 IN 1 D, ORAL
     Route: 048
     Dates: start: 20030512
  2. NEVIRAPINE [Concomitant]
  3. TENOFOVIR [Concomitant]
  4. VIRCAD [Concomitant]

REACTIONS (2)
  - CEREBRAL TOXOPLASMOSIS [None]
  - DISEASE RECURRENCE [None]
